FAERS Safety Report 12810996 (Version 7)
Quarter: 2017Q1

REPORT INFORMATION
  Report Type: Spontaneous
  Country: CA (occurrence: CA)
  Receive Date: 20161005
  Receipt Date: 20170306
  Transmission Date: 20170428
  Serious: Yes (Other)
  Sender: FDA-Public Use
  Company Number: CA-PFIZER INC-2016399706

PATIENT
  Age: 61 Year
  Sex: Female

DRUGS (18)
  1. BUDESONIDE. [Concomitant]
     Active Substance: BUDESONIDE
     Dosage: 64 UG, 4X/DAY (2 PUMPS DAILY IN EACH NOSTRIL)
     Route: 045
  2. PROLIA [Concomitant]
     Active Substance: DENOSUMAB
     Indication: OSTEOPOROSIS
  3. LENOLTECH NO 3 [Concomitant]
     Dosage: UNK, AS NEEDED (1-2 TABLETS TWICE A DAY)
  4. ZOPICLONE [Concomitant]
     Active Substance: ZOPICLONE
     Dosage: 7.5 MG, 1X/DAY (BED TIME)
     Route: 048
  5. RAMIPRIL. [Concomitant]
     Active Substance: RAMIPRIL
     Dosage: 5 MG, 1X/DAY
     Route: 048
  6. XELJANZ [Suspect]
     Active Substance: TOFACITINIB CITRATE
     Indication: RHEUMATOID ARTHRITIS
     Dosage: 5 MG, 2X/DAY
     Route: 048
     Dates: start: 20161015
  7. DILAUDID [Concomitant]
     Active Substance: HYDROMORPHONE HYDROCHLORIDE
     Dosage: 2 MG, AS NEEDED (1 TAB FOUR TIMES A DAY)
     Route: 048
  8. HYDROCHLOROTHIAZIDE. [Concomitant]
     Active Substance: HYDROCHLOROTHIAZIDE
     Dosage: 25 MG, 1X/DAY (1CAP)
     Route: 048
  9. BACLOFEN. [Concomitant]
     Active Substance: BACLOFEN
     Dosage: 10 MG, (1 TAB TWICE A DAY AS NEEDED)
     Route: 048
  10. PROLIA [Concomitant]
     Active Substance: DENOSUMAB
     Indication: MUSCULOSKELETAL DISCOMFORT
     Dosage: 1 DF, CYCLIC (EVERY 6 MONTHS)
     Dates: start: 20160919
  11. VENTOLIN [Concomitant]
     Active Substance: ALBUTEROL SULFATE
     Dosage: 100 UG, AS NEEDED
  12. GABAPENTIN. [Concomitant]
     Active Substance: GABAPENTIN
     Dosage: 300 MG, 2X/DAY (1TAB)
     Route: 048
  13. METHOTREXATE SODIUM. [Suspect]
     Active Substance: METHOTREXATE SODIUM
     Indication: RHEUMATOID ARTHRITIS
     Dosage: 1 ML, CYCLIC (EVERY 7 TO 10 DAYS)
     Route: 058
     Dates: start: 2011
  14. VITAMIN B12 [Concomitant]
     Active Substance: CYANOCOBALAMIN
     Dosage: UNK
  15. METHOTREXATE SODIUM. [Suspect]
     Active Substance: METHOTREXATE SODIUM
     Dosage: 1 ML, CYCLIC (WEEKLY)
     Route: 058
  16. ALTACE [Concomitant]
     Active Substance: RAMIPRIL
     Dosage: 5 MG, 1X/DAY (1CAP)
  17. LENOLTECH NO 3 [Concomitant]
     Dosage: 1-2 TABLETS EVERY 4 TO 6 HOURS
     Route: 048
  18. DEPO-MEDROL [Concomitant]
     Active Substance: METHYLPREDNISOLONE ACETATE
     Indication: RHEUMATOID ARTHRITIS
     Dosage: UNK

REACTIONS (11)
  - Nausea [Recovering/Resolving]
  - Osteoarthritis [Not Recovered/Not Resolved]
  - Body height decreased [Unknown]
  - Weight decreased [Unknown]
  - Decreased appetite [Unknown]
  - Compression fracture [Recovering/Resolving]
  - Condition aggravated [Not Recovered/Not Resolved]
  - Pain [Not Recovered/Not Resolved]
  - Condition aggravated [Recovered/Resolved]
  - Drug dose omission [Unknown]
  - Sinus disorder [Not Recovered/Not Resolved]

NARRATIVE: CASE EVENT DATE: 2016
